FAERS Safety Report 17998379 (Version 1)
Quarter: 2020Q3

REPORT INFORMATION
  Report Type: Spontaneous
  Country: US (occurrence: US)
  Receive Date: 20200709
  Receipt Date: 20200709
  Transmission Date: 20201103
  Serious: Yes (Hospitalization)
  Sender: FDA-Public Use
  Company Number: US-BIOVITRUM-2020US3586

PATIENT
  Age: 48 Year
  Sex: Male

DRUGS (1)
  1. KINERET [Suspect]
     Active Substance: ANAKINRA
     Indication: COVID-19
     Route: 058

REACTIONS (4)
  - Alanine aminotransferase increased [Unknown]
  - Injection site reaction [Unknown]
  - Off label use [Unknown]
  - Aspartate aminotransferase increased [Unknown]
